FAERS Safety Report 6911005-0 (Version None)
Quarter: 2010Q3

REPORT INFORMATION
  Report Type: 
  Country: None (occurrence: None)
  Receive Date: 20100806
  Receipt Date: 20100730
  Transmission Date: 20110219
  Serious: Yes (Hospitalization)
  Sender: FDA-Public Use
  Company Number: A0873241A

PATIENT
  Age: 46 Year
  Sex: Male

DRUGS (5)
  1. AVANDIA [Suspect]
     Dosage: 2MG PER DAY
     Route: 048
     Dates: start: 20030101, end: 20060101
  2. PREDNISONE [Concomitant]
  3. GABAPENTIN [Concomitant]
  4. OXYCONTIN [Concomitant]
  5. VICKS INH [Concomitant]

REACTIONS (11)
  - ANGIOPATHY [None]
  - BLOOD CALCIUM DECREASED [None]
  - BLOOD POTASSIUM DECREASED [None]
  - BLOOD SELENIUM DECREASED [None]
  - DEHYDRATION [None]
  - ILL-DEFINED DISORDER [None]
  - OEDEMA [None]
  - OPEN WOUND [None]
  - SECRETION DISCHARGE [None]
  - SKIN ULCER [None]
  - VOMITING [None]
